FAERS Safety Report 7409357-0 (Version None)
Quarter: 2011Q2

REPORT INFORMATION
  Report Type: 
  Country: None (occurrence: None)
  Receive Date: 20110412
  Receipt Date: 20100209
  Transmission Date: 20111010
  Serious: No
  Sender: FDA-Public Use
  Company Number: US-BAYER-201014368NA

PATIENT
  Age: 51 Year
  Sex: Female

DRUGS (2)
  1. TETRACYCLINE [Concomitant]
     Indication: ACNE
     Dosage: UNK
  2. MIRENA [Suspect]
     Indication: CONTRACEPTION
     Dosage: 20 ?G/D, CONT
     Route: 015
     Dates: start: 20090627

REACTIONS (2)
  - MENOMETRORRHAGIA [None]
  - POST PROCEDURAL HAEMORRHAGE [None]
